FAERS Safety Report 17309833 (Version 3)
Quarter: 2020Q1

REPORT INFORMATION
  Report Type: Report from Study
  Country: US (occurrence: US)
  Receive Date: 20200123
  Receipt Date: 20200306
  Transmission Date: 20200409
  Serious: Yes (Death, Hospitalization)
  Sender: FDA-Public Use
  Company Number: US-ACTELION-A-US2019-188237

PATIENT
  Age: 75 Year
  Sex: Male
  Weight: 57.14 kg

DRUGS (4)
  1. PREDNISONE. [Concomitant]
     Active Substance: PREDNISONE
     Dosage: 5 MG
  2. ADEMPAS [Concomitant]
     Active Substance: RIOCIGUAT
  3. OPSUMIT [Suspect]
     Active Substance: MACITENTAN
     Dosage: 10 MG, QD
     Route: 048
  4. OPSUMIT [Suspect]
     Active Substance: MACITENTAN
     Indication: PULMONARY ARTERIAL HYPERTENSION
     Dosage: 10 MG, QD
     Route: 048

REACTIONS (9)
  - Death [Fatal]
  - Lung carcinoma cell type unspecified stage IV [Unknown]
  - Aspiration pleural cavity [Unknown]
  - Oxygen saturation decreased [Unknown]
  - Dyspnoea exertional [Unknown]
  - Pleural effusion [Unknown]
  - Respiratory tract infection viral [Unknown]
  - Dyspnoea [Unknown]
  - Product dose omission [Unknown]

NARRATIVE: CASE EVENT DATE: 20200119
